FAERS Safety Report 12585953 (Version 1)
Quarter: 2016Q3

REPORT INFORMATION
  Report Type: Spontaneous
  Country: SA (occurrence: SA)
  Receive Date: 20160725
  Receipt Date: 20160725
  Transmission Date: 20161109
  Serious: Yes (Other)
  Sender: FDA-Public Use
  Company Number: SA-ACCORD-042607

PATIENT
  Age: 28 Year
  Sex: Female

DRUGS (1)
  1. ESCITALOPRAM [Suspect]
     Active Substance: ESCITALOPRAM OXALATE
     Indication: MAJOR DEPRESSION
     Dosage: ESCITALOPRAM UP TO 10 MG/ DAY

REACTIONS (2)
  - Alopecia [Recovered/Resolved]
  - Gastrointestinal disorder [Unknown]
